FAERS Safety Report 5404562-7 (Version None)
Quarter: 2007Q3

REPORT INFORMATION
  Report Type: 
  Country: None (occurrence: None)
  Receive Date: 20070802
  Receipt Date: 20070720
  Transmission Date: 20080115
  Serious: Yes (Other)
  Sender: FDA-Public Use
  Company Number: US-ELI_LILLY_AND_COMPANY-US200707005005

PATIENT
  Sex: Female

DRUGS (2)
  1. PROZAC [Suspect]
  2. ZYPREXA [Suspect]

REACTIONS (3)
  - ADVERSE EVENT [None]
  - COLON CANCER [None]
  - SUICIDAL IDEATION [None]
